FAERS Safety Report 9061750 (Version 1)
Quarter: 2013Q1

REPORT INFORMATION
  Report Type: Spontaneous
  Country: US (occurrence: None)
  Receive Date: 20130122
  Receipt Date: 20130122
  Transmission Date: 20140127
  Serious: Yes (Hospitalization)
  Sender: FDA-Public Use
  Company Number: 2013-00044

PATIENT
  Sex: Male

DRUGS (1)
  1. LISINOPRIL (UNKNOWN) [Suspect]
     Indication: PRODUCT USED FOR UNKNOWN INDICATION
     Dosage: UNKNOWN  (UNKNOWN, UNKNOWN),  PER ORAL?UNKNOWN  -  UNKNOWN
     Route: 048

REACTIONS (1)
  - Coma [None]
